FAERS Safety Report 12796389 (Version 1)
Quarter: 2016Q3

REPORT INFORMATION
  Report Type: Spontaneous
  Country: US (occurrence: US)
  Receive Date: 20160929
  Receipt Date: 20160929
  Transmission Date: 20161109
  Serious: Yes (Other)
  Sender: FDA-Public Use
  Company Number: US-009507513-1609USA009587

PATIENT
  Sex: Female

DRUGS (1)
  1. NEXPLANON [Suspect]
     Active Substance: ETONOGESTREL
     Dosage: 3 YEARS IN HER ARM
     Route: 059

REACTIONS (3)
  - Pregnancy with implant contraceptive [Unknown]
  - Vaginal haemorrhage [Unknown]
  - Unintended pregnancy [Unknown]
